FAERS Safety Report 8966353 (Version 1)
Quarter: 2012Q4

REPORT INFORMATION
  Report Type: 
  Country: CO (occurrence: CO)
  Receive Date: 20121217
  Receipt Date: 20121217
  Transmission Date: 20130627
  Serious: Yes (Other)
  Sender: FDA-Public Use
  Company Number: CO-VERTEX PHARMACEUTICALS INC.-2012-026198

PATIENT
  Sex: Female

DRUGS (3)
  1. INCIVO [Suspect]
     Indication: HEPATITIS C
     Dosage: Dosage Form: Tablet
     Route: 048
     Dates: start: 20121012
  2. RIBAVIRIN [Concomitant]
     Dosage: UNK
     Route: 065
  3. RIBAVIRIN [Concomitant]

REACTIONS (5)
  - Dizziness [Unknown]
  - Haemoglobin decreased [Unknown]
  - Malaise [Unknown]
  - Constipation [Unknown]
  - Vomiting [Unknown]
